FAERS Safety Report 21013652 (Version 2)
Quarter: 2023Q1

REPORT INFORMATION
  Report Type: Spontaneous
  Country: US (occurrence: US)
  Receive Date: 20220627
  Receipt Date: 20230324
  Transmission Date: 20230417
  Serious: No
  Sender: FDA-Public Use
  Company Number: US-SA-SAC20220620001585

PATIENT
  Age: 62 Year
  Sex: Female

DRUGS (2)
  1. FABRAZYME [Suspect]
     Active Substance: AGALSIDASE BETA
     Dosage: 70 MG, QOW
     Route: 042
  2. FABRAZYME [Suspect]
     Active Substance: AGALSIDASE BETA
     Dosage: 60 MG, QOW
     Route: 042

REACTIONS (2)
  - Cardiac pacemaker insertion [Unknown]
  - Intentional dose omission [Unknown]

NARRATIVE: CASE EVENT DATE: 20220617
